FAERS Safety Report 6935714-2 (Version None)
Quarter: 2010Q3

REPORT INFORMATION
  Report Type: 
  Country: None (occurrence: None)
  Receive Date: 20100823
  Receipt Date: 20100816
  Transmission Date: 20110219
  Serious: Yes (Hospitalization, Other)
  Sender: FDA-Public Use
  Company Number: US-ASTRAZENECA-2009UW04253

PATIENT
  Age: 629 Month
  Sex: Male
  Weight: 72.6 kg

DRUGS (12)
  1. SEROQUEL [Suspect]
     Indication: BIPOLAR DISORDER
     Route: 048
     Dates: start: 19990101, end: 20050301
  2. SEROQUEL [Suspect]
     Indication: DEPRESSION
     Route: 048
     Dates: start: 19990101, end: 20050301
  3. ZYPREXA [Suspect]
     Indication: DEPRESSION
     Dosage: 5MG-20MG
     Dates: start: 20030101, end: 20041201
  4. ZYPREXA [Suspect]
     Dosage: 2.5 MG TO 5 MG
     Route: 065
     Dates: start: 20040501, end: 20041201
  5. RISPERDAL [Suspect]
     Route: 065
     Dates: start: 20040301, end: 20040401
  6. XANAX [Concomitant]
     Dates: start: 20040101, end: 20050101
  7. XANAX [Concomitant]
     Dates: start: 20050101
  8. CYMBALTA [Concomitant]
     Dates: start: 20050101
  9. EFFEXOR XR [Concomitant]
     Dates: start: 19990101
  10. LORAZEPAM [Concomitant]
     Dates: start: 20040101
  11. PAXIL [Concomitant]
     Dates: start: 20040101, end: 20050101
  12. WELLBUTRIN [Concomitant]
     Dates: start: 20050101

REACTIONS (6)
  - BLINDNESS [None]
  - DIABETIC COMA [None]
  - DIABETIC KETOACIDOSIS [None]
  - NECK INJURY [None]
  - TYPE 2 DIABETES MELLITUS [None]
  - VISUAL IMPAIRMENT [None]
